FAERS Safety Report 8339344-X (Version None)
Quarter: 2012Q2

REPORT INFORMATION
  Report Type: 
  Country: None (occurrence: None)
  Receive Date: 20120507
  Receipt Date: 20120425
  Transmission Date: 20120825
  Serious: Yes (Other)
  Sender: FDA-Public Use
  Company Number: IT-JNJFOC-20120412210

PATIENT
  Age: 31 Year
  Sex: Male

DRUGS (2)
  1. INVEGA [Suspect]
     Route: 048
  2. INVEGA [Suspect]
     Indication: PRODUCT USED FOR UNKNOWN INDICATION
     Route: 048
     Dates: start: 20120425, end: 20120425

REACTIONS (3)
  - DYSKINESIA [None]
  - DYSTONIA [None]
  - DRUG ABUSE [None]
